FAERS Safety Report 5159428-7 (Version None)
Quarter: 2006Q4

REPORT INFORMATION
  Report Type: 
  Country: None (occurrence: None)
  Receive Date: 20061122
  Receipt Date: 20061122
  Transmission Date: 20070319
  Serious: No
  Sender: FDA-Public Use
  Company Number: None

PATIENT
  Age: 72 Year
  Sex: Male
  Weight: 72 kg

DRUGS (2)
  1. LOVENOX [Suspect]
     Indication: THROMBOSIS PROPHYLAXIS
     Dates: start: 20060804, end: 20060817
  2. AGATROBAN 250MG [Suspect]
     Indication: THROMBOSIS PROPHYLAXIS
     Dates: start: 20060820, end: 20060822

REACTIONS (5)
  - ACTIVATED PARTIAL THROMBOPLASTIN TIME ABNORMAL [None]
  - GASTROINTESTINAL HAEMORRHAGE [None]
  - HAEMATEMESIS [None]
  - HEPARIN-INDUCED THROMBOCYTOPENIA [None]
  - INTERNATIONAL NORMALISED RATIO ABNORMAL [None]
